FAERS Safety Report 21618070 (Version 1)
Quarter: 2022Q4

REPORT INFORMATION
  Report Type: Report from Study
  Country: US (occurrence: US)
  Receive Date: 20221119
  Receipt Date: 20221119
  Transmission Date: 20230113
  Serious: Yes (Other)
  Sender: FDA-Public Use
  Company Number: US-ABBVIE-4206220

PATIENT
  Sex: Male

DRUGS (1)
  1. VENCLEXTA [Suspect]
     Active Substance: VENETOCLAX
     Indication: Acute myeloid leukaemia
     Route: 048
     Dates: start: 202204

REACTIONS (5)
  - Plasma cell myeloma [Unknown]
  - Muscle spasms [Unknown]
  - Cardiac amyloidosis [Unknown]
  - Foot deformity [Unknown]
  - Oedema [Unknown]

NARRATIVE: CASE EVENT DATE: 20220101
